FAERS Safety Report 20350199 (Version 1)
Quarter: 2022Q1

REPORT INFORMATION
  Report Type: Spontaneous
  Country: US (occurrence: None)
  Receive Date: 20220117
  Receipt Date: 20220117
  Transmission Date: 20220423
  Serious: Yes (unspecified)
  Sender: FDA-Public Use
  Company Number: None

PATIENT
  Age: 42 Year
  Sex: Male
  Weight: 76.5 kg

DRUGS (1)
  1. LYRICA [Suspect]
     Active Substance: PREGABALIN

REACTIONS (4)
  - Anger [None]
  - Aggression [None]
  - Personality change [None]
  - Frustration tolerance decreased [None]

NARRATIVE: CASE EVENT DATE: 20210518
